FAERS Safety Report 7471178-0 (Version None)
Quarter: 2011Q2

REPORT INFORMATION
  Report Type: 
  Country: None (occurrence: None)
  Receive Date: 20110510
  Receipt Date: 20110505
  Transmission Date: 20111010
  Serious: Yes (Other)
  Sender: FDA-Public Use
  Company Number: GB-TEVA-280444ISR

PATIENT
  Age: 62 Year
  Sex: Male
  Weight: 118 kg

DRUGS (1)
  1. IPRATROPIUM BROMIDE [Suspect]
     Dates: start: 20110301

REACTIONS (1)
  - ORAL CANDIDIASIS [None]
